FAERS Safety Report 25414419 (Version 2)
Quarter: 2025Q3

REPORT INFORMATION
  Report Type: Spontaneous
  Country: US (occurrence: US)
  Receive Date: 20250609
  Receipt Date: 20250703
  Transmission Date: 20251020
  Serious: No
  Sender: SANOFI AVENTIS
  Company Number: US-SA-2025SA161805

PATIENT
  Age: 54 Year
  Sex: Male

DRUGS (17)
  1. DUPIXENT [Suspect]
     Active Substance: DUPILUMAB
     Indication: Asthma
     Dosage: 300 MG, QOW
     Route: 058
     Dates: start: 20250129
  2. ALLOPURINOL [Concomitant]
     Active Substance: ALLOPURINOL
  3. ALLOPURINOL [Concomitant]
     Active Substance: ALLOPURINOL
  4. ARMOUR THYROID [Concomitant]
     Active Substance: THYROID, PORCINE
  5. ARMOUR THYROID [Concomitant]
     Active Substance: THYROID, PORCINE
  6. AZELASTINE [Concomitant]
     Active Substance: AZELASTINE
  7. ELIQUIS [Concomitant]
     Active Substance: APIXABAN
  8. ENTRESTO [Concomitant]
     Active Substance: SACUBITRIL\VALSARTAN
  9. FAMOTIDINE [Concomitant]
     Active Substance: FAMOTIDINE
  10. HYDROCORTISONE [Concomitant]
     Active Substance: HYDROCORTISONE
  11. JARDIANCE [Concomitant]
     Active Substance: EMPAGLIFLOZIN
  12. METOPROLOL SUCCINATE [Concomitant]
     Active Substance: METOPROLOL SUCCINATE
  13. MONTELUKAST [Concomitant]
     Active Substance: MONTELUKAST
  14. OMEPRAZOLE [Concomitant]
     Active Substance: OMEPRAZOLE
  15. SPIRONOLACTONE [Concomitant]
     Active Substance: SPIRONOLACTONE
  16. ROSUVASTATIN [Concomitant]
     Active Substance: ROSUVASTATIN
  17. TESTOSTERONE CYPIONATE [Concomitant]
     Active Substance: TESTOSTERONE CYPIONATE

REACTIONS (3)
  - Cough [Not Recovered/Not Resolved]
  - Wheezing [Not Recovered/Not Resolved]
  - Impaired quality of life [Unknown]

NARRATIVE: CASE EVENT DATE: 20250101
